FAERS Safety Report 10571405 (Version 5)
Quarter: 2017Q4

REPORT INFORMATION
  Report Type: Spontaneous
  Country: US (occurrence: US)
  Receive Date: 20141107
  Receipt Date: 20171121
  Transmission Date: 20180320
  Serious: Yes (Hospitalization, Disabling, Other)
  Sender: FDA-Public Use
  Company Number: US-MERCK-1411USA000530

PATIENT
  Sex: Female

DRUGS (7)
  1. FOSAMAX [Suspect]
     Active Substance: ALENDRONATE SODIUM
     Indication: OSTEOPOROSIS
     Dosage: 70 MG, UNKNOWN
     Route: 048
     Dates: start: 200201, end: 200803
  2. CALCIUM (UNSPECIFIED) [Concomitant]
     Active Substance: CALCIUM
     Indication: PRODUCT USED FOR UNKNOWN INDICATION
     Dosage: 1200 MG, UNK
     Route: 065
     Dates: start: 1990
  3. VITAMIN D [Concomitant]
     Active Substance: CHOLECALCIFEROL
     Indication: PRODUCT USED FOR UNKNOWN INDICATION
     Dosage: 2000 IU, UNK
     Route: 065
     Dates: start: 1990
  4. VITAMINS (UNSPECIFIED) [Concomitant]
     Active Substance: VITAMINS
     Indication: PRODUCT USED FOR UNKNOWN INDICATION
     Dosage: UNK
     Route: 065
     Dates: start: 1990
  5. HORMONES (UNSPECIFIED) [Concomitant]
     Active Substance: UNSPECIFIED INGREDIENT
     Indication: PRODUCT USED FOR UNKNOWN INDICATION
     Dosage: UNK
     Route: 065
     Dates: start: 2000, end: 2005
  6. ELAVIL (ALLOPURINOL) [Concomitant]
     Active Substance: ALLOPURINOL
     Indication: DEPRESSION
     Dosage: UNK
     Route: 065
     Dates: start: 2000, end: 2005
  7. CORTICOSTEROIDS (UNSPECIFIED) [Concomitant]
     Active Substance: UNSPECIFIED INGREDIENT
     Indication: JOINT INJECTION
     Dosage: UNK, PRN
     Route: 030
     Dates: start: 1994

REACTIONS (19)
  - Device failure [Unknown]
  - Dental prosthesis placement [Unknown]
  - Angiopathy [Unknown]
  - Femur fracture [Unknown]
  - Hip arthroplasty [Unknown]
  - Low turnover osteopathy [Unknown]
  - Hypertension [Not Recovered/Not Resolved]
  - Mastication disorder [Unknown]
  - Headache [Unknown]
  - Spinal operation [Unknown]
  - Hip surgery [Unknown]
  - Nervousness [Unknown]
  - Bruxism [Unknown]
  - Knee arthroplasty [Unknown]
  - Tooth loss [Unknown]
  - Limb asymmetry [Unknown]
  - Oral surgery [Unknown]
  - Arthritis [Unknown]
  - Neck surgery [Unknown]

NARRATIVE: CASE EVENT DATE: 2005
